FAERS Safety Report 7426474-X (Version None)
Quarter: 2011Q2

REPORT INFORMATION
  Report Type: 
  Country: None (occurrence: None)
  Receive Date: 20110413
  Receipt Date: 20110404
  Transmission Date: 20111010
  Serious: Yes (Disabling, Other)
  Sender: FDA-Public Use
  Company Number: ALA_02427_2011

PATIENT
  Sex: Male

DRUGS (1)
  1. REGLAN [Suspect]
     Indication: IRRITABLE BOWEL SYNDROME
     Dosage: (DF ORAL)
     Route: 048
     Dates: start: 20070701, end: 20101001

REACTIONS (11)
  - ASTHENIA [None]
  - DIAPHRAGMATIC DISORDER [None]
  - DYSPNOEA [None]
  - TARDIVE DYSKINESIA [None]
  - ECONOMIC PROBLEM [None]
  - ACTIVITIES OF DAILY LIVING IMPAIRED [None]
  - PAIN [None]
  - DECREASED APPETITE [None]
  - UNEVALUABLE EVENT [None]
  - MENTAL DISORDER [None]
  - INJURY [None]
